FAERS Safety Report 21486642 (Version 1)
Quarter: 2022Q4

REPORT INFORMATION
  Report Type: Spontaneous
  Country: US (occurrence: None)
  Receive Date: 20221020
  Receipt Date: 20221020
  Transmission Date: 20230113
  Serious: Yes (Other)
  Sender: FDA-Public Use
  Company Number: None

PATIENT
  Age: 34 Year
  Sex: Female
  Weight: 60.75 kg

DRUGS (4)
  1. ORILISSA [Suspect]
     Active Substance: ELAGOLIX SODIUM
     Indication: Endometriosis
     Dosage: FREQUENCY : DAILY;?
     Route: 048
     Dates: start: 20220701, end: 20221018
  2. OMEPRAZOLE [Concomitant]
     Active Substance: OMEPRAZOLE
  3. ADDERALL [Concomitant]
     Active Substance: AMPHETAMINE ASPARTATE\AMPHETAMINE SULFATE\DEXTROAMPHETAMINE SACCHARATE\DEXTROAMPHETAMINE SULFATE
  4. ZYRTEC [Concomitant]
     Active Substance: CETIRIZINE HYDROCHLORIDE

REACTIONS (6)
  - Nausea [None]
  - Mood swings [None]
  - Anxiety [None]
  - Depression [None]
  - Hot flush [None]
  - Therapy cessation [None]

NARRATIVE: CASE EVENT DATE: 20221018
